FAERS Safety Report 13117344 (Version 1)
Quarter: 2017Q1

REPORT INFORMATION
  Report Type: Report from Study
  Country: None (occurrence: US)
  Receive Date: 20170116
  Receipt Date: 20170116
  Transmission Date: 20170428
  Serious: Yes (Hospitalization, Other)
  Sender: FDA-Public Use
  Company Number: US-ABBVIE-17K-163-1831826-00

PATIENT
  Age: 58 Year
  Sex: Male

DRUGS (1)
  1. HUMIRA [Suspect]
     Active Substance: ADALIMUMAB
     Indication: PSORIASIS
     Route: 058
     Dates: start: 201606, end: 201609

REACTIONS (3)
  - Large intestine polyp [Recovered/Resolved]
  - Hepatitis C [Not Recovered/Not Resolved]
  - Large intestine benign neoplasm [Recovered/Resolved]

NARRATIVE: CASE EVENT DATE: 201608
